FAERS Safety Report 14215565 (Version 3)
Quarter: 2018Q1

REPORT INFORMATION
  Report Type: Spontaneous
  Country: US (occurrence: US)
  Receive Date: 20171122
  Receipt Date: 20180316
  Transmission Date: 20180508
  Serious: No
  Sender: FDA-Public Use
  Company Number: US-JNJFOC-20171104638

PATIENT
  Sex: Male

DRUGS (2)
  1. ZYTIGA [Suspect]
     Active Substance: ABIRATERONE ACETATE
     Indication: PRODUCT USED FOR UNKNOWN INDICATION
     Route: 048
     Dates: start: 20170915, end: 201711
  2. LUPRON [Concomitant]
     Active Substance: LEUPROLIDE ACETATE
     Route: 065

REACTIONS (2)
  - Hyperhidrosis [Not Recovered/Not Resolved]
  - Adverse drug reaction [Unknown]
